FAERS Safety Report 8536965-6 (Version None)
Quarter: 2012Q3

REPORT INFORMATION
  Report Type: 
  Country: None (occurrence: None)
  Receive Date: 20120725
  Receipt Date: 20120713
  Transmission Date: 20120928
  Serious: Yes (Hospitalization)
  Sender: FDA-Public Use
  Company Number: SE-UCBSA-061912

PATIENT
  Age: 62 Year
  Sex: Male

DRUGS (5)
  1. IBUPROFEN [Concomitant]
  2. OMEPRAZOLE [Concomitant]
  3. PANODIL FILM-COATED TABLET [Concomitant]
  4. KOFFEIN RECIP TABLET 100 MG [Concomitant]
     Dosage: 100 MG
  5. NEUPRO [Suspect]
     Indication: PARKINSON'S DISEASE
     Dates: start: 20100601, end: 20120101

REACTIONS (2)
  - APHASIA [None]
  - HEADACHE [None]
